FAERS Safety Report 4471859-7 (Version None)
Quarter: 2004Q4

REPORT INFORMATION
  Report Type: 
  Country: None (occurrence: None)
  Receive Date: 20041012
  Receipt Date: 20030602
  Transmission Date: 20050328
  Serious: Yes (Other)
  Sender: FDA-Public Use
  Company Number: PHEH2003US04595

PATIENT
  Age: 81 Year
  Sex: Female

DRUGS (2)
  1. AMITRIPTYLINE HCL [Concomitant]
     Indication: NEUROPATHY
  2. DIOVAN HCT [Suspect]
     Indication: HYPERTENSION
     Dosage: VALS 160 MG/HCT 25 MG,DAILY
     Route: 048
     Dates: end: 20030619

REACTIONS (6)
  - BLOOD URIC ACID INCREASED [None]
  - DYSPNOEA [None]
  - DYSPNOEA EXERTIONAL [None]
  - HYPERVENTILATION [None]
  - OEDEMA PERIPHERAL [None]
  - PAIN IN EXTREMITY [None]
